FAERS Safety Report 25525139 (Version 1)
Quarter: 2025Q3

REPORT INFORMATION
  Report Type: Spontaneous
  Country: US (occurrence: None)
  Receive Date: 20250706
  Receipt Date: 20250706
  Transmission Date: 20251021
  Serious: Yes (Disabling)
  Sender: FDA-CTU
  Company Number: None

PATIENT
  Age: 36 Year
  Sex: Male
  Weight: 108 kg

DRUGS (1)
  1. OFLOXACIN OTIC [Suspect]
     Active Substance: OFLOXACIN
     Dates: start: 20240615, end: 20240618

REACTIONS (9)
  - Toxicity to various agents [None]
  - Nervous system disorder [None]
  - Anxiety [None]
  - Depression [None]
  - Vitreous floaters [None]
  - Tinnitus [None]
  - Insomnia [None]
  - Decreased appetite [None]
  - Weight decreased [None]

NARRATIVE: CASE EVENT DATE: 20240619
